FAERS Safety Report 4346012-8 (Version None)
Quarter: 2004Q2

REPORT INFORMATION
  Report Type: 
  Country: None (occurrence: None)
  Receive Date: 20040426
  Receipt Date: 20040409
  Transmission Date: 20050107
  Serious: Yes (Death, Other)
  Sender: FDA-Public Use
  Company Number: PHEH2004US04109

PATIENT
  Age: 57 Year
  Sex: Female

DRUGS (4)
  1. AREDIA [Suspect]
     Indication: MULTIPLE MYELOMA
     Dosage: 90 MG, QMO
     Route: 042
     Dates: start: 19981201, end: 20030201
  2. THALIDOMIDE [Concomitant]
     Indication: MULTIPLE MYELOMA
     Dosage: 50-100MG/ DAY
     Dates: start: 20020701, end: 20031001
  3. PREDNISONE [Concomitant]
     Indication: MULTIPLE MYELOMA
     Dosage: 60MG/D X 4 DAYS/ QMO
     Dates: start: 19981201, end: 20020601
  4. MELPHALAN [Concomitant]
     Indication: MULTIPLE MYELOMA
     Dosage: 8-10MG/DAY X 4DAYS QMO
     Dates: start: 19981201, end: 20020601

REACTIONS (5)
  - ABSCESS JAW [None]
  - CARDIAC FAILURE [None]
  - ORAL SURGERY [None]
  - OSTEONECROSIS [None]
  - WOUND DRAINAGE [None]
